FAERS Safety Report 10141082 (Version 3)
Quarter: 2014Q2

REPORT INFORMATION
  Report Type: Spontaneous
  Country: US (occurrence: US)
  Receive Date: 20140429
  Receipt Date: 20140515
  Transmission Date: 20141212
  Serious: Yes (Other)
  Sender: FDA-Public Use
  Company Number: US-TAKEDA-2014TUS003298

PATIENT
  Age: 64 Year
  Sex: Female
  Weight: 55.78 kg

DRUGS (4)
  1. BRINTELLIX [Suspect]
     Indication: DEPRESSION
     Dosage: 10 MG, QD
     Route: 048
     Dates: start: 20131126, end: 20140102
  2. LAMICTAL [Concomitant]
     Indication: AFFECTIVE DISORDER
     Dosage: 50 UNK, UNK
     Dates: start: 20130723
  3. TRAZOLAN [Concomitant]
     Indication: INSOMNIA
     Dosage: 50 UNK, UNK
     Dates: start: 20130723
  4. EFFEXOR [Concomitant]
     Indication: DEPRESSION
     Dosage: 75 UNK, UNK
     Dates: start: 20130723

REACTIONS (1)
  - Suicidal ideation [Recovered/Resolved]
